FAERS Safety Report 5370879-8 (Version None)
Quarter: 2007Q2

REPORT INFORMATION
  Report Type: 
  Country: None (occurrence: None)
  Receive Date: 20070614
  Receipt Date: 20070410
  Transmission Date: 20071010
  Serious: No
  Sender: FDA-Public Use
  Company Number: BDI-009376

PATIENT
  Age: 17 Year
  Sex: Female

DRUGS (2)
  1. MULTIHANCE [Suspect]
     Indication: MENINGIOMA
     Dosage: SY
     Dates: start: 20070410, end: 20070410
  2. MULTIHANCE [Suspect]
     Indication: NUCLEAR MAGNETIC RESONANCE IMAGING BRAIN
     Dosage: SY
     Dates: start: 20070410, end: 20070410

REACTIONS (2)
  - EYE SWELLING [None]
  - NASAL CONGESTION [None]
